FAERS Safety Report 4389444-4 (Version None)
Quarter: 2004Q3

REPORT INFORMATION
  Report Type: 
  Country: None (occurrence: None)
  Receive Date: 20040702
  Receipt Date: 20030923
  Transmission Date: 20050211
  Serious: Yes (Death)
  Sender: FDA-Public Use
  Company Number: NO-MERCK-0309NOR00021

PATIENT
  Age: 88 Year
  Sex: Female

DRUGS (5)
  1. ASPIRIN AND MAGNESIUM OXIDE [Suspect]
     Indication: ATRIAL FIBRILLATION
     Route: 065
     Dates: start: 19990101
  2. FUROSEMIDE SODIUM [Concomitant]
     Indication: OEDEMA
     Route: 065
     Dates: start: 19930101
  3. ISOSORBIDE MONONITRATE [Concomitant]
     Indication: ANGINA PECTORIS
     Route: 065
  4. NIFEDIPINE [Concomitant]
     Indication: HYPERTENSION
     Route: 065
  5. VIOXX [Suspect]
     Indication: PAIN
     Route: 048

REACTIONS (2)
  - DRUG INTERACTION [None]
  - GASTRIC ULCER PERFORATION [None]
